FAERS Safety Report 5441549-2 (Version None)
Quarter: 2007Q3

REPORT INFORMATION
  Report Type: 
  Country: None (occurrence: None)
  Receive Date: 20070904
  Receipt Date: 20070829
  Transmission Date: 20080115
  Serious: Yes (Hospitalization, Other)
  Sender: FDA-Public Use
  Company Number: FR-BRISTOL-MYERS SQUIBB COMPANY-13894514

PATIENT
  Age: 67 Year
  Sex: Female

DRUGS (8)
  1. COUMADIN [Suspect]
     Indication: PULMONARY EMBOLISM
     Route: 048
     Dates: start: 20060701
  2. CYCLOSPORINE [Concomitant]
     Route: 048
  3. ELISOR [Concomitant]
     Route: 048
  4. ZESTRIL [Concomitant]
     Route: 048
  5. ALLOPURINOL [Concomitant]
     Route: 048
  6. CACIT D3 [Concomitant]
     Route: 048
  7. LEXOMIL [Concomitant]
     Dosage: HALF DOSE FORM DAILY
     Route: 048
  8. IMOVANE [Concomitant]
     Route: 048

REACTIONS (5)
  - ANAEMIA [None]
  - DIARRHOEA [None]
  - HAEMORRHOIDS [None]
  - PROCTALGIA [None]
  - RECTAL HAEMORRHAGE [None]
